FAERS Safety Report 7723421-8 (Version None)
Quarter: 2011Q3

REPORT INFORMATION
  Report Type: 
  Country: None (occurrence: None)
  Receive Date: 20110826
  Receipt Date: 20110815
  Transmission Date: 20111222
  Serious: Yes (Other)
  Sender: FDA-Public Use
  Company Number: 2011MA005933

PATIENT
  Age: 83 Year
  Sex: Male

DRUGS (2)
  1. TRIMETHOPRIM [Suspect]
     Indication: URINARY TRACT INFECTION
     Dosage: 100 MG, BID, PO
     Route: 048
     Dates: start: 20110424, end: 20110427
  2. SPIRONOLACTONE [Suspect]
     Indication: CARDIAC FAILURE CONGESTIVE
     Dosage: 50 MG, PO
     Route: 048

REACTIONS (1)
  - HYPONATRAEMIA [None]
